FAERS Safety Report 9699065 (Version 1)
Quarter: 2013Q4

REPORT INFORMATION
  Report Type: Spontaneous
  Country: US (occurrence: None)
  Receive Date: 20131106
  Receipt Date: 20131106
  Transmission Date: 20140711
  Serious: Yes (Hospitalization)
  Sender: FDA-Public Use
  Company Number: 2013036786

PATIENT
  Sex: Female

DRUGS (3)
  1. HIZENTRA (IMMUNOGLOBULIN HUMAN NORMAL) [Suspect]
     Indication: HYPOGAMMAGLOBULINAEMIA
     Dates: start: 20111022, end: 20111022
  2. BENADRYL (DIPHENHYDRAMINE HYDROCHLORIDE) [Concomitant]
  3. ASTHMA MEDICATION (ANTI-ASTHMATICS) [Concomitant]

REACTIONS (3)
  - Pruritus [None]
  - Cellulitis [None]
  - Infusion site reaction [None]
